FAERS Safety Report 8774564 (Version 2)
Quarter: 2012Q4

REPORT INFORMATION
  Report Type: 
  Country: US (occurrence: US)
  Receive Date: 20120907
  Receipt Date: 20121015
  Transmission Date: 20130627
  Serious: Yes (Other)
  Sender: FDA-Public Use
  Company Number: US-B.I. PHARMACEUTICALS,INC./RIDGEFIELD-2012-BP-21392PF

PATIENT
  Age: 71 Year
  Sex: Female

DRUGS (3)
  1. SPIRIVA [Suspect]
     Indication: CHRONIC OBSTRUCTIVE PULMONARY DISEASE
     Dosage: 18 mcg
     Route: 055
     Dates: start: 20120705, end: 20120716
  2. ASPIRIN [Suspect]
     Indication: CORONARY ARTERY DISEASE
  3. PLAVIX [Suspect]
     Indication: CORONARY ARTERY DISEASE

REACTIONS (4)
  - Pulmonary haemorrhage [Recovered/Resolved]
  - Cough [Recovered/Resolved]
  - Haemoptysis [Recovered/Resolved]
  - Dry throat [Unknown]
